FAERS Safety Report 14602714 (Version 2)
Quarter: 2018Q1

REPORT INFORMATION
  Report Type: Report from Study
  Country: US (occurrence: US)
  Receive Date: 20180306
  Receipt Date: 20180329
  Transmission Date: 20180509
  Serious: Yes (Hospitalization)
  Sender: FDA-Public Use
  Company Number: US-GILEAD-2018-0324383

PATIENT
  Age: 71 Year
  Sex: Male
  Weight: 83.99 kg

DRUGS (7)
  1. AMBRISENTAN [Suspect]
     Active Substance: AMBRISENTAN
     Indication: PULMONARY HYPERTENSION
     Dosage: 10 MG, QD
     Route: 065
     Dates: start: 20170518
  2. METOPROLOL. [Concomitant]
     Active Substance: METOPROLOL
  3. TYVASO [Concomitant]
     Active Substance: TREPROSTINIL
  4. ELIQUIS [Concomitant]
     Active Substance: APIXABAN
  5. REVATIO [Concomitant]
     Active Substance: SILDENAFIL CITRATE
  6. LIPITOR [Concomitant]
     Active Substance: ATORVASTATIN CALCIUM
  7. BUMEX [Concomitant]
     Active Substance: BUMETANIDE

REACTIONS (3)
  - Infection [Unknown]
  - Hypotension [Unknown]
  - Dyspnoea [Unknown]
